FAERS Safety Report 6146655-5 (Version None)
Quarter: 2009Q2

REPORT INFORMATION
  Report Type: 
  Country: None (occurrence: None)
  Receive Date: 20090403
  Receipt Date: 20090403
  Transmission Date: 20091009
  Serious: Yes (Hospitalization)
  Sender: FDA-Public Use
  Company Number: None

PATIENT
  Age: 41 Year
  Sex: Male
  Weight: 113.9 kg

DRUGS (1)
  1. QUETIAPINE FUMARATE [Suspect]
     Indication: POST-TRAUMATIC STRESS DISORDER
     Dosage: 600 MG ONCE PO
     Route: 048
     Dates: start: 20090225

REACTIONS (6)
  - DEPRESSION [None]
  - DRY MOUTH [None]
  - OVERDOSE [None]
  - SEDATION [None]
  - SUBSTANCE ABUSE [None]
  - SUICIDE ATTEMPT [None]
